FAERS Safety Report 17359634 (Version 2)
Quarter: 2020Q2

REPORT INFORMATION
  Report Type: Spontaneous
  Country: US (occurrence: US)
  Receive Date: 20200203
  Receipt Date: 20200506
  Transmission Date: 20200713
  Serious: No
  Sender: FDA-Public Use
  Company Number: US-AUROBINDO-AUR-APL-2020-003086

PATIENT
  Age: 74 Year
  Sex: Female
  Weight: 68.03 kg

DRUGS (1)
  1. ESOMEPRAZOLE MAGNESIUM DELAYED-RELEASE CAPSULES USP 20 MG [Suspect]
     Active Substance: ESOMEPRAZOLE MAGNESIUM
     Indication: DYSPEPSIA
     Dosage: 3 DOSAGE FORM, ONCE A DAY 3(CAPSULES FOR 3 DAYS)
     Route: 065
     Dates: start: 20200101, end: 20200104

REACTIONS (5)
  - Nausea [Unknown]
  - Abdominal pain upper [Unknown]
  - Gastric disorder [Unknown]
  - Diarrhoea [Unknown]
  - Vomiting [Unknown]

NARRATIVE: CASE EVENT DATE: 20200109
